FAERS Safety Report 4298412-2 (Version None)
Quarter: 2004Q1

REPORT INFORMATION
  Report Type: 
  Country: None (occurrence: None)
  Receive Date: 20040218
  Receipt Date: 20030515
  Transmission Date: 20041129
  Serious: No
  Sender: FDA-Public Use
  Company Number: US-BRISTOL-MYERS SQUIBB COMPANY-12277372

PATIENT
  Age: 52 Year
  Sex: Male
  Weight: 82 kg

DRUGS (4)
  1. STADOL [Suspect]
     Indication: MIGRAINE WITHOUT AURA
     Dosage: THERAPY FOR THE PAST 4-5 YEARS
     Route: 045
  2. IMITREX [Concomitant]
  3. LIPITOR [Concomitant]
  4. LISINOPRIL [Concomitant]

REACTIONS (2)
  - HEADACHE [None]
  - TINNITUS [None]
